FAERS Safety Report 24314531 (Version 2)
Quarter: 2024Q4

REPORT INFORMATION
  Report Type: Report from Study
  Country: US (occurrence: US)
  Receive Date: 20240913
  Receipt Date: 20241128
  Transmission Date: 20250114
  Serious: No
  Sender: ASTELLAS
  Company Number: US-ASTELLAS-2024-AER-005159

PATIENT
  Age: 81 Year
  Sex: Male

DRUGS (2)
  1. XTANDI [Suspect]
     Active Substance: ENZALUTAMIDE
     Indication: Product used for unknown indication
     Route: 048
     Dates: start: 202407
  2. XTANDI [Suspect]
     Active Substance: ENZALUTAMIDE
     Route: 048

REACTIONS (7)
  - COVID-19 [Recovered/Resolved]
  - Urine output decreased [Unknown]
  - Weight decreased [Unknown]
  - Panic attack [Unknown]
  - Dyspnoea [Unknown]
  - Hypophagia [Unknown]
  - Oxygen saturation decreased [Unknown]
